FAERS Safety Report 8505828-4 (Version None)
Quarter: 2012Q3

REPORT INFORMATION
  Report Type: 
  Country: None (occurrence: None)
  Receive Date: 20120706
  Receipt Date: 20120706
  Transmission Date: 20120928
  Serious: Yes (Other)
  Sender: FDA-Public Use
  Company Number: None

PATIENT
  Sex: Female

DRUGS (1)
  1. LISTERINE ZERO MOUTHWASH CLEAN MINT (ORAL CARE PRODUCTS) ORAL RINSE [Suspect]
     Indication: PRODUCT USED FOR UNKNOWN INDICATION
     Dosage: 2 IN 1 DAY, ORAL
     Route: 048
     Dates: start: 20120501

REACTIONS (4)
  - HYPOAESTHESIA [None]
  - DYSGEUSIA [None]
  - GLOSSODYNIA [None]
  - AGEUSIA [None]
